FAERS Safety Report 14587504 (Version 2)
Quarter: 2018Q1

REPORT INFORMATION
  Report Type: Spontaneous
  Country: US (occurrence: US)
  Receive Date: 20180301
  Receipt Date: 20180321
  Transmission Date: 20180509
  Serious: Yes (Disabling, Other)
  Sender: FDA-Public Use
  Company Number: US-REGENERON PHARMACEUTICALS, INC.-2018-10226

PATIENT

DRUGS (2)
  1. EYLEA [Suspect]
     Active Substance: AFLIBERCEPT
     Indication: RETINAL VEIN OCCLUSION
     Dosage: UNK, Q4W, RIGHT EYE (OD)
     Route: 031
     Dates: start: 20150420, end: 20171120
  2. EYLEA [Suspect]
     Active Substance: AFLIBERCEPT
     Indication: CYSTOID MACULAR OEDEMA

REACTIONS (2)
  - Blindness transient [Recovered/Resolved]
  - Eye inflammation [Recovered/Resolved]

NARRATIVE: CASE EVENT DATE: 20171205
